FAERS Safety Report 20408257 (Version 3)
Quarter: 2022Q1

REPORT INFORMATION
  Report Type: Report from Study
  Country: US (occurrence: US)
  Receive Date: 20220201
  Receipt Date: 20220221
  Transmission Date: 20220423
  Serious: Yes (Other)
  Sender: FDA-Public Use
  Company Number: US-UCBSA-2022003122

PATIENT
  Age: 29 Year
  Sex: Male

DRUGS (1)
  1. LACOSAMIDE [Suspect]
     Active Substance: LACOSAMIDE
     Indication: Seizure
     Dosage: 200MG ONE TAB MORNING AND 2 TABLET AT NIGHT

REACTIONS (6)
  - Brain operation [Not Recovered/Not Resolved]
  - Speech disorder [Not Recovered/Not Resolved]
  - Clavicle fracture [Not Recovered/Not Resolved]
  - Incorrect dose administered [Unknown]
  - Overdose [Unknown]
  - Accident [Unknown]

NARRATIVE: CASE EVENT DATE: 20190814
